FAERS Safety Report 9664614 (Version 1)
Quarter: 2013Q4

REPORT INFORMATION
  Report Type: Spontaneous
  Country: IT (occurrence: None)
  Receive Date: 20131031
  Receipt Date: 20131031
  Transmission Date: 20140711
  Serious: Yes (Other)
  Sender: FDA-Public Use
  Company Number: FK201304800

PATIENT
  Age: 21 Year
  Sex: Female

DRUGS (3)
  1. ETOPOSIDE [Suspect]
     Indication: ACUTE LYMPHOCYTIC LEUKAEMIA
  2. CYCLOPHOSPHAMIDE [Suspect]
     Indication: ACUTE LYMPHOCYTIC LEUKAEMIA
  3. NELARABINE [Suspect]
     Indication: ACUTE LYMPHOCYTIC LEUKAEMIA

REACTIONS (2)
  - Cystitis haemorrhagic [None]
  - BK virus infection [None]
